FAERS Safety Report 25915407 (Version 1)
Quarter: 2025Q4

REPORT INFORMATION
  Report Type: Spontaneous
  Country: EU (occurrence: EU)
  Receive Date: 20251013
  Receipt Date: 20251013
  Transmission Date: 20260117
  Serious: No
  Sender: BridgeBio Pharma
  Company Number: EU-BAYER-2025A131840

PATIENT
  Sex: Male

DRUGS (1)
  1. ACORAMIDIS [Suspect]
     Active Substance: ACORAMIDIS
     Dosage: UNK

REACTIONS (1)
  - Rash pruritic [Not Recovered/Not Resolved]

NARRATIVE: CASE EVENT DATE: 20251003
